FAERS Safety Report 8958829 (Version 2)
Quarter: 2012Q4

REPORT INFORMATION
  Report Type: 
  Country: US (occurrence: US)
  Receive Date: 20121212
  Receipt Date: 20121220
  Transmission Date: 20130627
  Serious: Yes (Hospitalization)
  Sender: FDA-Public Use
  Company Number: US-VIROPHARMA INCORPORATED-20120806CINRY3225

PATIENT
  Age: 32 None
  Sex: Female

DRUGS (2)
  1. CINRYZE (C1 ESTERASE INHIBITOR (HUMAN)) [Suspect]
     Indication: HEREDITARY ANGIOEDEMA
     Dates: start: 2010, end: 201209
  2. CINRYZE (C1 ESTERASE INHIBITOR (HUMAN)) [Suspect]
     Dates: start: 201209

REACTIONS (6)
  - Premature delivery [Recovered/Resolved]
  - Exposure during pregnancy [Recovered/Resolved]
  - Hereditary angioedema [Recovered/Resolved]
  - Angioedema [Recovered/Resolved]
  - Off label use [Recovered/Resolved]
  - Incorrect drug administration duration [Not Recovered/Not Resolved]
